FAERS Safety Report 26116976 (Version 1)
Quarter: 2025Q4

REPORT INFORMATION
  Report Type: Spontaneous
  Country: US (occurrence: None)
  Receive Date: 20251202
  Receipt Date: 20251202
  Transmission Date: 20260118
  Serious: Yes (Other)
  Sender: FDA-CTU
  Company Number: None

PATIENT
  Age: 64 Year
  Sex: Male
  Weight: 113.4 kg

DRUGS (6)
  1. ALPROLIX [Suspect]
     Active Substance: EFTRENONACOG ALFA
     Indication: Factor IX deficiency
     Dosage: 2054 IU INTERNATIONAL UNIT(S) INTRAVENOUS  ONCE BOLUS
     Route: 040
     Dates: start: 20251105
  2. ALPROLIX [Suspect]
     Active Substance: EFTRENONACOG ALFA
     Indication: Factor IX deficiency
     Dosage: 6414 IU INTERNATIONAL UNIT(S) ONCE INTRAVENOUS BOLUS?
     Route: 040
     Dates: start: 20251105
  3. Losartan 50 mg PO daily [Concomitant]
  4. Magnesium 250 mg PO daily [Concomitant]
  5. Metoprolol 50 mg PO daily [Concomitant]
  6. BENEFIX [Suspect]
     Active Substance: COAGULATION FACTOR IX RECOMBINANT HUMAN\ISOPROPYL ALCOHOL

REACTIONS (3)
  - Infusion related reaction [None]
  - Back pain [None]
  - Flushing [None]

NARRATIVE: CASE EVENT DATE: 20251105
